FAERS Safety Report 5103853-7 (Version None)
Quarter: 2006Q3

REPORT INFORMATION
  Report Type: 
  Country: None (occurrence: None)
  Receive Date: 20060913
  Receipt Date: 20060906
  Transmission Date: 20061208
  Serious: Yes (Death)
  Sender: FDA-Public Use
  Company Number: US-GLAXOSMITHKLINE-A0619792A

PATIENT
  Sex: Male
  Weight: 1.4 kg

DRUGS (12)
  1. LAMICTAL [Suspect]
     Indication: EPILEPSY
     Dosage: 400MG PER DAY
     Dates: end: 20060515
  2. KLONOPIN [Concomitant]
     Indication: EPILEPSY
     Dosage: 2MG PER DAY
  3. NEURONTIN [Concomitant]
     Indication: EPILEPSY
     Dosage: 900MG PER DAY
     Dates: start: 20060401, end: 20060515
  4. ZOLOFT [Concomitant]
     Indication: PELVIC PAIN
     Dosage: 50MG PER DAY
  5. FENTANYL [Concomitant]
     Dosage: 75MG PER DAY
     Dates: start: 20060501, end: 20060515
  6. PROGESTERONE [Concomitant]
     Dates: start: 20060415, end: 20060515
  7. VANCERIL [Concomitant]
     Indication: ASTHMA
  8. NASACORT [Concomitant]
     Indication: MULTIPLE ALLERGIES
  9. PRENATAL VITAMINS [Concomitant]
  10. FOLATE [Concomitant]
  11. DETROL LA [Concomitant]
     Indication: DRUG USE FOR UNKNOWN INDICATION
     Dates: start: 20060227, end: 20060515
  12. PERCOCET [Concomitant]
     Indication: PAIN
     Dosage: 40MG PER DAY
     Dates: start: 20060401, end: 20060515

REACTIONS (3)
  - DEATH NEONATAL [None]
  - DRUG EXPOSURE DURING PREGNANCY [None]
  - PREMATURE LABOUR [None]
